FAERS Safety Report 11787552 (Version 1)
Quarter: 2015Q4

REPORT INFORMATION
  Report Type: Spontaneous
  Country: GB (occurrence: GB)
  Receive Date: 20151130
  Receipt Date: 20151130
  Transmission Date: 20160305
  Serious: Yes (Hospitalization, Other)
  Sender: FDA-Public Use
  Company Number: GB-SA-2015SA190206

PATIENT
  Age: 63 Year
  Sex: Male
  Weight: 82 kg

DRUGS (20)
  1. CLOPIDOGREL [Concomitant]
     Active Substance: CLOPIDOGREL BISULFATE
  2. CYCLIZINE [Concomitant]
     Active Substance: CYCLIZINE
  3. GANFORT [Concomitant]
     Active Substance: BIMATOPROST\TIMOLOL
  4. SENNA [Concomitant]
     Active Substance: SENNA LEAF\SENNOSIDES\SENNOSIDES A AND B
  5. CODEINE PHOSPHATE [Concomitant]
     Active Substance: CODEINE PHOSPHATE
  6. RIFAMPICIN [Suspect]
     Active Substance: RIFAMPIN
     Indication: ACUTE ENDOCARDITIS
     Route: 048
     Dates: start: 20150928, end: 20151108
  7. HYDROXOCOBALAMIN [Concomitant]
     Active Substance: HYDROXOCOBALAMIN
  8. LANSOPRAZOLE. [Concomitant]
     Active Substance: LANSOPRAZOLE
  9. METFORMIN [Concomitant]
     Active Substance: METFORMIN HYDROCHLORIDE
  10. PARACETAMOL [Concomitant]
     Active Substance: ACETAMINOPHEN
  11. LACTULOSE. [Concomitant]
     Active Substance: LACTULOSE
  12. SPIRONOLACTONE. [Concomitant]
     Active Substance: SPIRONOLACTONE
  13. LISINOPRIL. [Concomitant]
     Active Substance: LISINOPRIL
  14. HUMALOG [Concomitant]
     Active Substance: INSULIN LISPRO
  15. LANTUS [Concomitant]
     Active Substance: INSULIN GLARGINE
  16. ATORVASTATIN [Concomitant]
     Active Substance: ATORVASTATIN
  17. DOCUSATE [Concomitant]
     Active Substance: DOCUSATE
  18. FLUCLOXACILLIN [Concomitant]
     Active Substance: FLUCLOXACILLIN
  19. AZATHIOPRINE. [Concomitant]
     Active Substance: AZATHIOPRINE
  20. ENOXAPARIN [Concomitant]
     Active Substance: ENOXAPARIN

REACTIONS (2)
  - Renal tubular acidosis [Recovering/Resolving]
  - Fanconi syndrome [Recovering/Resolving]

NARRATIVE: CASE EVENT DATE: 20151106
